FAERS Safety Report 7382988-2 (Version None)
Quarter: 2011Q1

REPORT INFORMATION
  Report Type: 
  Country: None (occurrence: None)
  Receive Date: 20110324
  Receipt Date: 20110324
  Transmission Date: 20110831
  Serious: Yes (Life-Threatening, Other)
  Sender: FDA-Public Use
  Company Number: None

PATIENT
  Sex: Female
  Weight: 83.9154 kg

DRUGS (5)
  1. LYRICA [Suspect]
     Indication: DIABETES MELLITUS
     Dosage: 100MG QHS ORAL (047)
     Route: 048
     Dates: start: 20100901
  2. LYRICA [Suspect]
     Indication: NEUROPATHY PERIPHERAL
     Dosage: 100MG QHS ORAL (047)
     Route: 048
     Dates: start: 20100901
  3. LYRICA [Suspect]
     Indication: DIABETES MELLITUS
     Dosage: 100MG QHS ORAL (047)
     Route: 048
     Dates: start: 20040901
  4. LYRICA [Suspect]
     Indication: NEUROPATHY PERIPHERAL
     Dosage: 100MG QHS ORAL (047)
     Route: 048
     Dates: start: 20040901
  5. NSAIDS [Concomitant]

REACTIONS (2)
  - DRUG INEFFECTIVE [None]
  - ANAEMIA [None]
